FAERS Safety Report 11831746 (Version 1)
Quarter: 2015Q4

REPORT INFORMATION
  Report Type: Spontaneous
  Country: US (occurrence: None)
  Receive Date: 20151211
  Receipt Date: 20151211
  Transmission Date: 20160305
  Serious: Yes (Disabling, Other)
  Sender: FDA-Public Use
  Company Number: None

PATIENT
  Age: 23 Year
  Sex: Female
  Weight: 58.97 kg

DRUGS (1)
  1. BTT (LIDOCAINE 12.5%, TETRACAINE 12.5%, PRILOCAINE 3%, PHENYLEPHRINE 3%) 12.5 WOODLAND HILLS PHARMACY [Suspect]
     Active Substance: LIDOCAINE\PHENYLEPHRINE\PRILOCAINE\TETRACAINE
     Indication: ANAESTHESIA PROCEDURE
     Dosage: 75 GM FOR PROCEDURE ORAL MUCOSA
     Route: 048
     Dates: start: 20151209, end: 20151209

REACTIONS (7)
  - Gingival pain [None]
  - Hypersensitivity [None]
  - Product formulation issue [None]
  - Headache [None]
  - Crying [None]
  - Gingival disorder [None]
  - Chemical injury [None]

NARRATIVE: CASE EVENT DATE: 20151209
